FAERS Safety Report 8314481-4 (Version None)
Quarter: 2012Q2

REPORT INFORMATION
  Report Type: 
  Country: None (occurrence: None)
  Receive Date: 20120426
  Receipt Date: 20120419
  Transmission Date: 20120825
  Serious: Yes (Death, Hospitalization)
  Sender: FDA-Public Use
  Company Number: FR-PFIZER INC-2010SA027954

PATIENT
  Age: 47 Year
  Sex: Male

DRUGS (6)
  1. FLUOROURACIL [Suspect]
     Indication: HYPOPHARYNGEAL CANCER
     Dosage: 1500 MG/ML, 1X/DAY
     Route: 042
     Dates: start: 20100407, end: 20100407
  2. CISPLATIN [Suspect]
     Indication: HYPOPHARYNGEAL CANCER
     Dosage: 150 MG, 1X/DAY
     Route: 042
     Dates: start: 20100407, end: 20100407
  3. TAXOTERE [Suspect]
     Indication: HYPOPHARYNGEAL CANCER
     Dosage: 150 MG, 1X/DAY
     Route: 042
     Dates: start: 20100407, end: 20100407
  4. ZOFRAN [Suspect]
     Indication: PREMEDICATION
     Dosage: 16 MG, 1X/DAY
     Route: 042
     Dates: start: 20100407, end: 20100407
  5. NEUPOGEN [Suspect]
     Indication: PREMEDICATION
     Dosage: UNKNOWN
     Route: 065
     Dates: start: 20100407, end: 20100407
  6. SOLU-MEDROL [Suspect]
     Dosage: 160 MG, 1X/DAY
     Route: 042
     Dates: start: 20100407, end: 20100407

REACTIONS (4)
  - LEUKOPENIA [None]
  - INTESTINAL INFARCTION [None]
  - BACTERIAL SEPSIS [None]
  - SEPTIC SHOCK [None]
